FAERS Safety Report 19656125 (Version 1)
Quarter: 2021Q3

REPORT INFORMATION
  Report Type: Spontaneous
  Country: US (occurrence: US)
  Receive Date: 20210802
  Receipt Date: 20210802
  Transmission Date: 20211014
  Serious: No
  Sender: FDA-Public Use
  Company Number: None

PATIENT

DRUGS (2)
  1. LISINOPRIL. [Suspect]
     Active Substance: LISINOPRIL
  2. AMLODIPINE [Suspect]
     Active Substance: AMLODIPINE BESYLATE

REACTIONS (6)
  - Hypotension [None]
  - Drug ineffective [None]
  - Treatment noncompliance [None]
  - Wrong technique in product usage process [None]
  - Blood creatinine increased [None]
  - Incorrect dose administered [None]
